FAERS Safety Report 14367683 (Version 7)
Quarter: 2018Q4

REPORT INFORMATION
  Report Type: Report from Study
  Country: DE (occurrence: DE)
  Receive Date: 20180109
  Receipt Date: 20181128
  Transmission Date: 20190204
  Serious: Yes (Hospitalization)
  Sender: FDA-Public Use
  Company Number: DE-GILEAD-2016-0247268

PATIENT
  Age: 74 Year
  Sex: Male
  Weight: 81 kg

DRUGS (23)
  1. PARACETAMOL [Concomitant]
     Active Substance: ACETAMINOPHEN
     Dosage: UNK
     Dates: start: 20101209
  2. PARACETAMOL [Concomitant]
     Active Substance: ACETAMINOPHEN
     Indication: PYREXIA
  3. INTRATECT [Concomitant]
     Active Substance: HUMAN IMMUNOGLOBULIN G
  4. PANTOPRAZOL [Concomitant]
     Active Substance: PANTOPRAZOLE SODIUM
  5. RITUXIMAB. [Concomitant]
     Active Substance: RITUXIMAB
     Dosage: UNK
     Route: 065
     Dates: start: 20160517
  6. RITUXIMAB. [Concomitant]
     Active Substance: RITUXIMAB
     Dosage: UNK
     Route: 065
  7. DIGIMED [Concomitant]
     Active Substance: DIGOXIN
     Indication: ATRIAL FIBRILLATION
  8. RITUXIMAB. [Concomitant]
     Active Substance: RITUXIMAB
     Dosage: UNK
     Route: 065
  9. COTRIM FORTE [Concomitant]
     Active Substance: SULFAMETHOXAZOLE\TRIMETHOPRIM
     Dosage: UNK
     Dates: start: 20160427, end: 20160503
  10. BISOPROLOL [Concomitant]
     Active Substance: BISOPROLOL
     Indication: ATRIAL FIBRILLATION
  11. BISOPROLOL [Concomitant]
     Active Substance: BISOPROLOL
  12. RITUXIMAB. [Concomitant]
     Active Substance: RITUXIMAB
     Dosage: UNK
     Route: 065
  13. CLEXANE [Concomitant]
     Active Substance: ENOXAPARIN SODIUM
  14. IDELALISIB [Suspect]
     Active Substance: IDELALISIB
     Indication: CHRONIC LYMPHOCYTIC LEUKAEMIA
     Dosage: 300 MG, QD
     Route: 048
     Dates: start: 20160503, end: 20160610
  15. METOCLOPRAMID                      /00041901/ [Concomitant]
     Active Substance: METOCLOPRAMIDE
     Indication: NAUSEA
     Dosage: UNK
     Dates: start: 20160427
  16. RITUXIMAB. [Concomitant]
     Active Substance: RITUXIMAB
     Dosage: UNK
     Route: 065
  17. MARCUMAR [Concomitant]
     Active Substance: PHENPROCOUMON
  18. TORASEMID [Concomitant]
     Active Substance: TORSEMIDE
     Indication: ATRIAL FIBRILLATION
  19. RITUXIMAB. [Concomitant]
     Active Substance: RITUXIMAB
     Indication: CHRONIC LYMPHOCYTIC LEUKAEMIA
     Dosage: UNK
     Route: 065
     Dates: start: 20160503, end: 20160503
  20. COTRIM FORTE [Concomitant]
     Active Substance: SULFAMETHOXAZOLE\TRIMETHOPRIM
  21. LOPERAMID [Concomitant]
     Active Substance: LOPERAMIDE
     Dosage: UNK
     Dates: start: 20110310
  22. LOPERAMID [Concomitant]
     Active Substance: LOPERAMIDE
     Indication: DIARRHOEA
  23. BISOPROLOL [Concomitant]
     Active Substance: BISOPROLOL

REACTIONS (2)
  - Pneumonia bacterial [Recovered/Resolved]
  - Candida pneumonia [Recovered/Resolved]

NARRATIVE: CASE EVENT DATE: 20160615
